FAERS Safety Report 5786288-3 (Version None)
Quarter: 2008Q2

REPORT INFORMATION
  Report Type: 
  Country: None (occurrence: None)
  Receive Date: 20080624
  Receipt Date: 20070723
  Transmission Date: 20081010
  Serious: No
  Sender: FDA-Public Use
  Company Number: US-ASTRAZENECA-2007UW17798

PATIENT
  Age: 82 Year
  Sex: Male
  Weight: 79.8 kg

DRUGS (6)
  1. PULMICORT RESPULES [Suspect]
     Indication: ASTHMA
     Route: 055
     Dates: start: 20070723
  2. DUONEB [Concomitant]
     Dates: start: 20070723
  3. OXYGEN [Concomitant]
  4. LIPITOR [Concomitant]
  5. CLONAZEPAM [Concomitant]
  6. SYNTHROID [Concomitant]

REACTIONS (1)
  - DIZZINESS [None]
